FAERS Safety Report 6094242-X (Version None)
Quarter: 2009Q1

REPORT INFORMATION
  Report Type: 
  Country: None (occurrence: None)
  Receive Date: 20090219
  Receipt Date: 20081113
  Transmission Date: 20090719
  Serious: No
  Sender: FDA-Public Use
  Company Number: WAES 0811USA02153

PATIENT
  Age: 80 Year
  Sex: Female

DRUGS (4)
  1. JANUVIA [Suspect]
     Indication: DIABETES MELLITUS
     Dosage: PO
     Route: 048
     Dates: end: 20081113
  2. LANTUS [Concomitant]
  3. NOVOLOG [Concomitant]
  4. INSULIN [Concomitant]

REACTIONS (1)
  - RASH [None]
